FAERS Safety Report 12010879 (Version 5)
Quarter: 2016Q3

REPORT INFORMATION
  Report Type: Spontaneous
  Country: US (occurrence: US)
  Receive Date: 20160205
  Receipt Date: 20160722
  Transmission Date: 20161109
  Serious: Yes (Hospitalization)
  Sender: FDA-Public Use
  Company Number: US-ACTELION-A-US2016-130823

PATIENT
  Age: 58 Year
  Sex: Male

DRUGS (12)
  1. GABAPENTIN. [Suspect]
     Active Substance: GABAPENTIN
     Indication: PRODUCT USED FOR UNKNOWN INDICATION
     Route: 065
  2. POTASSIUM [Concomitant]
     Active Substance: POTASSIUM
  3. REQUIP [Concomitant]
     Active Substance: ROPINIROLE HYDROCHLORIDE
  4. RYTHMOL [Concomitant]
     Active Substance: PROPAFENONE HYDROCHLORIDE
  5. PREDNISONE. [Concomitant]
     Active Substance: PREDNISONE
  6. SILDENAFIL. [Concomitant]
     Active Substance: SILDENAFIL
  7. REMODULIN [Concomitant]
     Active Substance: TREPROSTINIL
     Dosage: 136 NG/KG, PER MIN
     Route: 058
     Dates: start: 201601
  8. ROPINIROLE. [Concomitant]
     Active Substance: ROPINIROLE
  9. RIOCIGUAT [Concomitant]
     Active Substance: RIOCIGUAT
     Dosage: 1.5 MG, TID
     Dates: start: 20160506
  10. WARFARIN [Concomitant]
     Active Substance: WARFARIN
  11. TRACLEER [Suspect]
     Active Substance: BOSENTAN
     Indication: PULMONARY ARTERIAL HYPERTENSION
     Dosage: 125 MG, BID
     Route: 048
     Dates: start: 20020419
  12. REMODULIN [Concomitant]
     Active Substance: TREPROSTINIL
     Dosage: 124 NG/KG, PER MIN
     Route: 058
     Dates: end: 201601

REACTIONS (14)
  - Hallucination [Unknown]
  - Somnolence [Unknown]
  - Respiratory distress [Unknown]
  - Fall [Recovering/Resolving]
  - Dyspnoea [Recovered/Resolved]
  - Oedema peripheral [Not Recovered/Not Resolved]
  - Swelling [Not Recovered/Not Resolved]
  - Nausea [Not Recovered/Not Resolved]
  - Swelling face [Recovering/Resolving]
  - Local swelling [Recovering/Resolving]
  - Pain [Not Recovered/Not Resolved]
  - Ascites [Not Recovered/Not Resolved]
  - Oedema [Recovering/Resolving]
  - Neck injury [Recovering/Resolving]

NARRATIVE: CASE EVENT DATE: 20160119
